FAERS Safety Report 11117137 (Version 1)
Quarter: 2015Q2

REPORT INFORMATION
  Report Type: Spontaneous
  Country: US (occurrence: US)
  Receive Date: 20150515
  Receipt Date: 20150515
  Transmission Date: 20150821
  Serious: No
  Sender: FDA-Public Use
  Company Number: US-PFIZER INC-2015162556

PATIENT
  Age: 49 Year
  Sex: Male
  Weight: 79 kg

DRUGS (3)
  1. ADVIL [Suspect]
     Active Substance: IBUPROFEN
     Indication: ARTHRALGIA
  2. ADVIL [Suspect]
     Active Substance: IBUPROFEN
     Indication: JOINT STIFFNESS
     Dosage: UNK
     Route: 048
  3. ADVIL [Concomitant]
     Active Substance: IBUPROFEN
     Dosage: UNK

REACTIONS (2)
  - Dyspepsia [Unknown]
  - Product coating issue [Unknown]
